FAERS Safety Report 22260865 (Version 2)
Quarter: 2023Q2

REPORT INFORMATION
  Report Type: Spontaneous
  Country: US (occurrence: US)
  Receive Date: 20230427
  Receipt Date: 20230614
  Transmission Date: 20230721
  Serious: Yes (Hospitalization, Other)
  Sender: FDA-Public Use
  Company Number: US-JAZZ PHARMACEUTICALS-2023-US-009365

PATIENT
  Age: 31 Year
  Sex: Male
  Weight: 71.3 kg

DRUGS (1)
  1. XYREM [Suspect]
     Active Substance: SODIUM OXYBATE
     Indication: Product used for unknown indication

REACTIONS (4)
  - Seizure [Recovered/Resolved]
  - Confusional state [Recovered/Resolved]
  - Miosis [Recovered/Resolved]
  - Incorrect product formulation administered [Unknown]
